FAERS Safety Report 4579252-3 (Version None)
Quarter: 2005Q1

REPORT INFORMATION
  Report Type: 
  Country: None (occurrence: None)
  Receive Date: 20050210
  Receipt Date: 20050210
  Transmission Date: 20050727
  Serious: Yes (Other)
  Sender: FDA-Public Use
  Company Number: None

PATIENT
  Sex: Male
  Weight: 123 kg

DRUGS (3)
  1. ZYLOPRIM [Suspect]
     Dosage: 300 MG PO QD FOR 14 DAYS
     Route: 048
     Dates: start: 20050108
  2. CYCLOPHOSPHAMIDE [Suspect]
     Dosage: 200 MG /M2 IV OVER 5-15 MIN QD ON DAYS 1-5
     Route: 042
  3. PREDNISONE [Suspect]
     Dosage: 60 MG/M2 PO QD ON DAYS 1-7
     Route: 048

REACTIONS (7)
  - DYSPNOEA [None]
  - EPISTAXIS [None]
  - HAEMATURIA [None]
  - OXYGEN SATURATION DECREASED [None]
  - PULMONARY EMBOLISM [None]
  - TACHYCARDIA [None]
  - THROMBOCYTOPENIA [None]
